FAERS Safety Report 5250399-1 (Version None)
Quarter: 2007Q1

REPORT INFORMATION
  Report Type: 
  Country: None (occurrence: None)
  Receive Date: 20070228
  Receipt Date: 20060427
  Transmission Date: 20070707
  Serious: No
  Sender: FDA-Public Use
  Company Number: US-GLAXOSMITHKLINE-A0600958A

PATIENT
  Sex: Male

DRUGS (5)
  1. LAMICTAL [Suspect]
     Indication: BIPOLAR DISORDER
     Dosage: 200MG PER DAY
     Route: 048
  2. PRAVACHOL [Concomitant]
  3. LITHIUM CARBONATE [Concomitant]
  4. ANTIHYPERTENSIVE [Concomitant]
  5. DIURETIC [Concomitant]

REACTIONS (1)
  - OEDEMA PERIPHERAL [None]
